FAERS Safety Report 16709737 (Version 1)
Quarter: 2019Q3

REPORT INFORMATION
  Report Type: Spontaneous
  Country: US (occurrence: US)
  Receive Date: 20190701
  Receipt Date: 20190701
  Transmission Date: 20191004
  Serious: Yes (Hospitalization)
  Sender: FDA-Public Use
  Company Number: None

PATIENT
  Age: 52 Year
  Sex: Female

DRUGS (4)
  1. DIVIGEL GEL [Concomitant]
  2. PROGESTERONE CAP [Concomitant]
     Active Substance: PROGESTERONE
  3. CIMZIA [Suspect]
     Active Substance: CERTOLIZUMAB PEGOL
     Indication: PRODUCT USED FOR UNKNOWN INDICATION
     Route: 058
     Dates: start: 20190108
  4. METRONIDAZOLE TAB [Concomitant]

REACTIONS (2)
  - Hypophagia [None]
  - Crohn^s disease [None]

NARRATIVE: CASE EVENT DATE: 201905
